FAERS Safety Report 20909470 (Version 1)
Quarter: 2022Q2

REPORT INFORMATION
  Report Type: Report from Study
  Country: AU (occurrence: None)
  Receive Date: 20220603
  Receipt Date: 20220603
  Transmission Date: 20220720
  Serious: Yes (Hospitalization)
  Sender: FDA-Public Use
  Company Number: AU-ROCHE-1364832

PATIENT
  Age: 74 Year
  Sex: Female
  Weight: 67 kg

DRUGS (12)
  1. RITUXIMAB [Suspect]
     Active Substance: RITUXIMAB
     Indication: Chronic lymphocytic leukaemia recurrent
     Route: 042
     Dates: start: 20131029, end: 20131029
  2. RITUXIMAB [Suspect]
     Active Substance: RITUXIMAB
     Route: 042
     Dates: start: 20131127, end: 20140220
  3. VENETOCLAX [Suspect]
     Active Substance: VENETOCLAX
     Indication: Chronic lymphocytic leukaemia recurrent
     Dosage: DATE OF LAST DOSE PRIOR TO SAE: 10/MAR/2014
     Route: 048
     Dates: start: 20131001, end: 20131001
  4. VENETOCLAX [Suspect]
     Active Substance: VENETOCLAX
     Route: 048
     Dates: start: 20131002, end: 20131007
  5. VENETOCLAX [Suspect]
     Active Substance: VENETOCLAX
     Route: 048
     Dates: start: 20131008, end: 20131014
  6. VENETOCLAX [Suspect]
     Active Substance: VENETOCLAX
     Route: 048
     Dates: start: 20131015, end: 20131021
  7. VENETOCLAX [Suspect]
     Active Substance: VENETOCLAX
     Route: 048
     Dates: start: 20131022, end: 20131027
  8. ALLOPURINOL [Concomitant]
     Active Substance: ALLOPURINOL
     Indication: Neoplasm prophylaxis
     Route: 048
     Dates: start: 20130927, end: 20131223
  9. LOPERAMIDE [Concomitant]
     Active Substance: LOPERAMIDE
     Indication: Diarrhoea
     Dates: start: 20130429
  10. VALACYCLOVIR HYDROCHLORIDE [Concomitant]
     Active Substance: VALACYCLOVIR HYDROCHLORIDE
     Indication: Antiviral prophylaxis
     Dates: start: 20130315, end: 20131223
  11. PREDNISOLONE [Concomitant]
     Active Substance: PREDNISOLONE
     Indication: Autoimmune haemolytic anaemia
     Route: 048
     Dates: start: 20060615, end: 20130928
  12. PREDNISOLONE [Concomitant]
     Active Substance: PREDNISOLONE
     Indication: Infection prophylaxis

REACTIONS (4)
  - Pyrexia [Recovered/Resolved]
  - Malignant neoplasm progression [Recovered/Resolved]
  - Richter^s syndrome [Recovered/Resolved]
  - Chronic lymphocytic leukaemia transformation [Recovered/Resolved]

NARRATIVE: CASE EVENT DATE: 20140304
